FAERS Safety Report 23416045 (Version 1)
Quarter: 2024Q1

REPORT INFORMATION
  Report Type: Spontaneous
  Country: BR (occurrence: BR)
  Receive Date: 20240118
  Receipt Date: 20240118
  Transmission Date: 20240410
  Serious: Yes (Other)
  Sender: FDA-Public Use
  Company Number: BR-CHEPLA-2024000715

PATIENT
  Sex: Female
  Weight: 58 kg

DRUGS (15)
  1. CLONAZEPAM [Suspect]
     Active Substance: CLONAZEPAM
     Indication: Anxiety
     Dosage: NIGHT?DAILY DOSE: 1 DOSAGE FORM
     Route: 048
     Dates: start: 2023, end: 2023
  2. CLONAZEPAM [Suspect]
     Active Substance: CLONAZEPAM
     Indication: Depression
     Dosage: NIGHT?DAILY DOSE: 1 DOSAGE FORM
     Route: 048
     Dates: start: 2023, end: 2023
  3. CLONAZEPAM [Suspect]
     Active Substance: CLONAZEPAM
     Indication: Anxiety
     Dosage: 1 AND 1/2 TABLET, START DATE: ABOUT 15 YEARS?DAILY DOSE: 1.5 DOSAGE FORM
     Route: 048
     Dates: end: 2023
  4. CLONAZEPAM [Suspect]
     Active Substance: CLONAZEPAM
     Indication: Depression
     Dosage: 1 AND 1/2 TABLET, START DATE: ABOUT 15 YEARS?DAILY DOSE: 1.5 DOSAGE FORM
     Route: 048
     Dates: end: 2023
  5. CLONAZEPAM [Suspect]
     Active Substance: CLONAZEPAM
     Indication: Anxiety
     Dosage: 2 TIMES A DAYMORNING AND NIGHT), START DATE: ABOUT 15 YEARS, END DATE: ABOUT 15 YEARS
     Route: 048
  6. CLONAZEPAM [Suspect]
     Active Substance: CLONAZEPAM
     Indication: Depression
     Dosage: 2 TIMES A DAYMORNING AND NIGHT), START DATE: ABOUT 15 YEARS, END DATE: ABOUT 15 YEARS
     Route: 048
  7. CLONAZEPAM [Suspect]
     Active Substance: CLONAZEPAM
     Indication: Anxiety
     Dosage: NIGHT, START DATE: ABOUT 10 DAYS AGO (DEC 2023), ONGOING?DAILY DOSE: 2 DOSAGE FORM
     Route: 048
  8. CLONAZEPAM [Suspect]
     Active Substance: CLONAZEPAM
     Indication: Depression
     Dosage: NIGHT, START DATE: ABOUT 10 DAYS AGO (DEC 2023), ONGOING?DAILY DOSE: 2 DOSAGE FORM
     Route: 048
  9. VENLAFAXINE HYDROCHLORIDE [Concomitant]
     Active Substance: VENLAFAXINE HYDROCHLORIDE
     Indication: Depression
     Dosage: 2 TIMES A DAY, START DATE: ABOUT 4 YEARS, ONGOING ?DAILY DOSE: 2 DOSAGE FORM
     Route: 048
  10. TRAZODONE HYDROCHLORIDE [Concomitant]
     Active Substance: TRAZODONE HYDROCHLORIDE
     Indication: Depression
     Dosage: START DATE: ABOUT 4 YEARS, ONGOING ?DAILY DOSE: 1 DOSAGE FORM
     Route: 048
  11. Clonazepam (generic, from another laboratory) [Concomitant]
     Indication: Malaise
     Dosage: NIGHT?DAILY DOSE: 1 DOSAGE FORM
     Route: 048
     Dates: start: 202310, end: 202310
  12. Clonazepam (generic, from another laboratory) [Concomitant]
     Indication: Depression
     Dosage: NIGHT?DAILY DOSE: 1 DOSAGE FORM
     Route: 048
     Dates: start: 202310, end: 202310
  13. Clonazepam (generic, from another laboratory) [Concomitant]
     Indication: Fall
     Dosage: NIGHT?DAILY DOSE: 1 DOSAGE FORM
     Route: 048
     Dates: start: 202310, end: 202310
  14. Clonazepam (generic, from another laboratory) [Concomitant]
     Indication: Anxiety
     Dosage: NIGHT?DAILY DOSE: 1 DOSAGE FORM
     Route: 048
     Dates: start: 202310, end: 202310
  15. FLUOXETINE HYDROCHLORIDE [Concomitant]
     Active Substance: FLUOXETINE HYDROCHLORIDE
     Indication: Depression
     Dosage: START DATE:^A LONG TIME AGO. ABOUT 4 YEARS?DAILY DOSE: 1 DOSAGE FORM
     Route: 048

REACTIONS (3)
  - Ovarian cancer [Not Recovered/Not Resolved]
  - Metastasis [Not Recovered/Not Resolved]
  - Product use in unapproved indication [Not Recovered/Not Resolved]

NARRATIVE: CASE EVENT DATE: 20190101
